FAERS Safety Report 21746095 (Version 2)
Quarter: 2022Q4

REPORT INFORMATION
  Report Type: Spontaneous
  Country: US (occurrence: US)
  Receive Date: 20221219
  Receipt Date: 20221220
  Transmission Date: 20230112
  Serious: No
  Sender: FDA-Public Use
  Company Number: US-002147023-NVSC2022US292407

PATIENT
  Sex: Male

DRUGS (2)
  1. TAFINLAR [Suspect]
     Active Substance: DABRAFENIB MESYLATE
     Indication: Bone cancer
     Dosage: 150 MG, BID
     Route: 048
     Dates: start: 202207
  2. MEKINIST [Suspect]
     Active Substance: TRAMETINIB DIMETHYL SULFOXIDE
     Indication: Bone cancer
     Dosage: 2 MG, QD
     Route: 048
     Dates: start: 202207

REACTIONS (2)
  - Tremor [Unknown]
  - Off label use [Unknown]
